FAERS Safety Report 9738972 (Version 1)
Quarter: 2013Q4

REPORT INFORMATION
  Report Type: Spontaneous
  Country: US (occurrence: US)
  Receive Date: 20131209
  Receipt Date: 20131209
  Transmission Date: 20140711
  Serious: Yes (Hospitalization)
  Sender: FDA-Public Use
  Company Number: US-BAYER-2013-148597

PATIENT
  Age: 24 Year
  Sex: Female
  Weight: 80.73 kg

DRUGS (5)
  1. YASMIN [Suspect]
  2. YAZ [Suspect]
  3. NEXIUM [Concomitant]
     Dosage: 40 MG, LONG TERM USE
  4. REGLAN [Concomitant]
     Dosage: 5 MG, LONG TERM USE
  5. DITROPAN XL [Concomitant]
     Dosage: LONG TERM USE

REACTIONS (2)
  - Deep vein thrombosis [Recovered/Resolved]
  - Pulmonary embolism [Recovered/Resolved]
